FAERS Safety Report 11801150 (Version 2)
Quarter: 2016Q1

REPORT INFORMATION
  Report Type: Report from Study
  Country: ES (occurrence: ES)
  Receive Date: 20151204
  Receipt Date: 20160205
  Transmission Date: 20160525
  Serious: Yes (Other)
  Sender: FDA-Public Use
  Company Number: ES-ACTELION-A-CH2015-128245

PATIENT
  Age: 53 Year
  Sex: Female
  Weight: 59 kg

DRUGS (3)
  1. TRACLEER [Suspect]
     Active Substance: BOSENTAN
     Indication: SCLERODERMA ASSOCIATED DIGITAL ULCER
     Dosage: 125 MG, BID
     Route: 048
     Dates: start: 20131117, end: 20150928
  2. TRACLEER [Suspect]
     Active Substance: BOSENTAN
     Dosage: 62.5 MG, BID
     Route: 048
     Dates: start: 20131012, end: 20131116
  3. TRACLEER [Suspect]
     Active Substance: BOSENTAN
     Dosage: UNK UNK
     Route: 048
     Dates: start: 20151108

REACTIONS (2)
  - Breast operation [Unknown]
  - Breast cancer [Unknown]

NARRATIVE: CASE EVENT DATE: 20150928
